FAERS Safety Report 7160036-7 (Version None)
Quarter: 2010Q4

REPORT INFORMATION
  Report Type: 
  Country: None (occurrence: None)
  Receive Date: 20101214
  Receipt Date: 20091123
  Transmission Date: 20110411
  Serious: No
  Sender: FDA-Public Use
  Company Number: US-AMGEN-KDL376281

PATIENT

DRUGS (5)
  1. ENBREL [Suspect]
     Indication: PRODUCT USED FOR UNKNOWN INDICATION
     Dosage: 50 MG, QWK
     Route: 058
  2. METHOTREXATE [Concomitant]
  3. ATENOLOL [Concomitant]
  4. SIMVASTATIN [Concomitant]
  5. FOLIC ACID [Concomitant]

REACTIONS (4)
  - DYSPHONIA [None]
  - OROPHARYNGEAL PAIN [None]
  - PYREXIA [None]
  - RESPIRATORY TRACT CONGESTION [None]
